FAERS Safety Report 4764660-8 (Version None)
Quarter: 2005Q3

REPORT INFORMATION
  Report Type: 
  Country: None (occurrence: None)
  Receive Date: 20050909
  Receipt Date: 20050905
  Transmission Date: 20060218
  Serious: Yes (Other)
  Sender: FDA-Public Use
  Company Number: JP-JPN-A20052114

PATIENT
  Age: 35 Year
  Sex: Female

DRUGS (3)
  1. FLUTIDE [Suspect]
     Indication: ASTHMA
     Dosage: 200MCG TWICE PER DAY
     Route: 055
     Dates: start: 20050817, end: 20050829
  2. SEREVENT [Suspect]
     Indication: ASTHMA
     Dosage: 50MCG TWICE PER DAY
     Route: 055
     Dates: start: 20050817, end: 20050829
  3. SULTANOL [Suspect]
     Route: 055
     Dates: start: 20050817

REACTIONS (1)
  - ERYTHEMA MULTIFORME [None]
